FAERS Safety Report 21050294 (Version 2)
Quarter: 2022Q3

REPORT INFORMATION
  Report Type: Spontaneous
  Country: US (occurrence: US)
  Receive Date: 20220707
  Receipt Date: 20220915
  Transmission Date: 20221026
  Serious: Yes (Other)
  Sender: FDA-Public Use
  Company Number: US-BRISTOL-MYERS SQUIBB COMPANY-2022-064353

PATIENT
  Age: 53 Year
  Sex: Male
  Weight: 106.14 kg

DRUGS (2)
  1. REVLIMID [Suspect]
     Active Substance: LENALIDOMIDE
     Indication: Plasma cell myeloma
     Route: 048
     Dates: start: 20210528
  2. REVLIMID [Suspect]
     Active Substance: LENALIDOMIDE
     Dosage: FREQUENCY: DAILY ON DAYS 1-28 EVERY 28 DAYS
     Route: 048
     Dates: start: 20201222

REACTIONS (2)
  - Neuropathy peripheral [Unknown]
  - Hyperhidrosis [Unknown]
